FAERS Safety Report 19351564 (Version 1)
Quarter: 2021Q2

REPORT INFORMATION
  Report Type: Spontaneous
  Country: AT (occurrence: AT)
  Receive Date: 20210531
  Receipt Date: 20210531
  Transmission Date: 20210717
  Serious: Yes (Hospitalization)
  Sender: FDA-Public Use
  Company Number: AT-MYLANLABS-2021M1031595

PATIENT
  Age: 42 Year
  Sex: Male

DRUGS (1)
  1. EPINEPHRINE. [Suspect]
     Active Substance: EPINEPHRINE
     Indication: HYPERSENSITIVITY
     Route: 065

REACTIONS (2)
  - Device use issue [Recovered/Resolved]
  - Vasoconstriction [Recovered/Resolved]
